FAERS Safety Report 9447784 (Version 4)
Quarter: 2013Q4

REPORT INFORMATION
  Report Type: Spontaneous
  Country: JP (occurrence: JP)
  Receive Date: 20130808
  Receipt Date: 20131217
  Transmission Date: 20140711
  Serious: Yes (Death)
  Sender: FDA-Public Use
  Company Number: JP-ROCHE-1259334

PATIENT
  Age: 65 Year
  Sex: Male
  Weight: 50 kg

DRUGS (2)
  1. PEGASYS [Suspect]
     Indication: HEPATIC CIRRHOSIS
     Route: 058
     Dates: start: 20110906, end: 20120919
  2. COPEGUS [Suspect]
     Indication: HEPATIC CIRRHOSIS
     Route: 048
     Dates: start: 20110906

REACTIONS (4)
  - Acquired haemophilia [Fatal]
  - Cerebellar haemorrhage [Fatal]
  - Pleural effusion [Unknown]
  - Cardiomegaly [Unknown]
